FAERS Safety Report 5939340-3 (Version None)
Quarter: 2008Q4

REPORT INFORMATION
  Report Type: 
  Country: None (occurrence: None)
  Receive Date: 20081103
  Receipt Date: 20081021
  Transmission Date: 20090506
  Serious: Yes (Hospitalization, Other)
  Sender: FDA-Public Use
  Company Number: US-ELI_LILLY_AND_COMPANY-US200804003021

PATIENT
  Sex: Female

DRUGS (15)
  1. CYMBALTA [Suspect]
     Indication: DEPRESSED MOOD
     Dosage: 60 MG, DAILY (1/D)
     Dates: start: 20080327, end: 20080331
  2. SYNTHROID [Concomitant]
     Dosage: 75 UG, DAILY (1/D)
  3. ASPIRIN [Concomitant]
  4. TOPAMAX [Concomitant]
     Dosage: 200 MG, 3/D
  5. TOPAMAX [Concomitant]
     Dosage: 200 MG, 2/D
  6. DDAVP [Concomitant]
     Indication: DIABETES INSIPIDUS
     Dosage: 0.2 UG, 2/D
  7. SIMVASTATIN [Concomitant]
     Dosage: UNK, DAILY (1/D)
  8. CLONAZEPAM [Concomitant]
     Dosage: 1 MG, 2/D
  9. GEODON [Concomitant]
     Dosage: 40 MG, DAILY (1/D)
  10. GEODON [Concomitant]
     Dosage: 40 MG, 2/D
  11. GEODON [Concomitant]
     Dosage: 40 MG, DAILY (1/D)
  12. FLEXERIL [Concomitant]
     Dosage: 10 NCI, UNK
  13. ADVAIR DISKUS 100/50 [Concomitant]
     Dosage: UNK, 2/D
  14. TUMS [Concomitant]
     Dosage: UNK, DAILY (1/D)
  15. HYPNOTICS AND SEDATIVES [Concomitant]
     Dosage: UNK, AS NEEDED

REACTIONS (15)
  - ASTHENIA [None]
  - AURA [None]
  - BLOOD CREATINE PHOSPHOKINASE INCREASED [None]
  - BLOOD PRESSURE DECREASED [None]
  - CATATONIA [None]
  - DIZZINESS [None]
  - DRUG INTERACTION [None]
  - FATIGUE [None]
  - FEELING ABNORMAL [None]
  - HYPONATRAEMIA [None]
  - LETHARGY [None]
  - ORTHOSTATIC HYPOTENSION [None]
  - PRESYNCOPE [None]
  - THINKING ABNORMAL [None]
  - URINARY INCONTINENCE [None]
